FAERS Safety Report 8890523 (Version 1)
Quarter: 2012Q4

REPORT INFORMATION
  Report Type: 
  Country: FR (occurrence: FR)
  Receive Date: 20121107
  Receipt Date: 20121107
  Transmission Date: 20130627
  Serious: Yes (Other)
  Sender: FDA-Public Use
  Company Number: FR-ASTELLAS-2012EU009460

PATIENT
  Age: 24 Year
  Sex: Male

DRUGS (5)
  1. TACROLIMUS SYSTEMIC [Suspect]
     Indication: IMMUNOSUPPRESSION
     Dosage: UNK
     Route: 065
  2. PROTOPIC [Suspect]
     Indication: TRANSPLANT REJECTION
     Dosage: UNK
     Route: 061
  3. MYCOPHENOLATE MOFETIL [Suspect]
     Indication: IMMUNOSUPPRESSION
     Dosage: 2 g, Unknown/D
     Route: 065
  4. PREDNISONE [Suspect]
     Indication: IMMUNOSUPPRESSION
     Dosage: 5 mg, Unknown/D
     Route: 065
  5. CLOBETASOL [Suspect]
     Indication: TRANSPLANT REJECTION
     Dosage: UNK
     Route: 061

REACTIONS (3)
  - Off label use [Unknown]
  - Off label use [Unknown]
  - Nephropathy toxic [Unknown]
